FAERS Safety Report 24438640 (Version 1)
Quarter: 2024Q4

REPORT INFORMATION
  Report Type: Spontaneous
  Country: FI (occurrence: FI)
  Receive Date: 20241015
  Receipt Date: 20241015
  Transmission Date: 20250115
  Serious: Yes (Other)
  Sender: JOHNSON AND JOHNSON
  Company Number: None

PATIENT
  Age: 67 Year
  Sex: Male

DRUGS (8)
  1. DARZALEX [Suspect]
     Active Substance: DARATUMUMAB
     Indication: Plasma cell myeloma
     Dosage: X1/VKO
     Route: 058
     Dates: start: 20240820, end: 20240910
  2. BISOPROLOL FUMARATE [Concomitant]
     Active Substance: BISOPROLOL FUMARATE
     Indication: Coronary artery disease
     Dosage: 0.5X1/PV
     Route: 048
     Dates: start: 2024
  3. ENALAPRIL MALEATE [Concomitant]
     Active Substance: ENALAPRIL MALEATE
     Indication: Hypertension
     Dosage: 1X2/PV
     Route: 048
     Dates: start: 2011
  4. EZETIMIBE [Concomitant]
     Active Substance: EZETIMIBE
     Indication: Dyslipidaemia
     Route: 048
     Dates: start: 2023
  5. SIMVASTATIN [Concomitant]
     Active Substance: SIMVASTATIN
     Indication: Dyslipidaemia
     Dosage: 1X1/PV
     Route: 048
     Dates: start: 2011
  6. LEVOTHYROXINE [Concomitant]
     Active Substance: LEVOTHYROXINE
     Indication: Hypothyroidism
     Dosage: ?
     Route: 048
     Dates: start: 2011
  7. SULFAMETHOXAZOLE\TRIMETHOPRIM [Concomitant]
     Active Substance: SULFAMETHOXAZOLE\TRIMETHOPRIM
     Indication: Antifungal prophylaxis
     Dosage: 1 TABLETTI 3 KERTAA VIIKOSSA / 1 TABLET THREE TIMES PER WEEK
     Route: 048
     Dates: start: 2024
  8. LENALIDOMIDE ORION [Concomitant]
     Indication: Plasma cell myeloma
     Dosage: 3 VIIKON AJAN, SITTEN VIIKON TAUKO / 3 WEEKS, THEN ONE WEEK PAUSE
     Route: 048
     Dates: start: 20240705, end: 202409

REACTIONS (4)
  - Polyneuropathy [Not Recovered/Not Resolved]
  - Gait disturbance [Not Recovered/Not Resolved]
  - Wheelchair user [Not Recovered/Not Resolved]
  - Pain in extremity [Not Recovered/Not Resolved]

NARRATIVE: CASE EVENT DATE: 20240901
